FAERS Safety Report 5834068-2 (Version None)
Quarter: 2008Q3

REPORT INFORMATION
  Report Type: 
  Country: None (occurrence: None)
  Receive Date: 20080801
  Receipt Date: 20080801
  Transmission Date: 20090109
  Serious: Yes (Hospitalization)
  Sender: FDA-Public Use
  Company Number: None

PATIENT
  Age: 74 Year
  Sex: Male
  Weight: 105.23 kg

DRUGS (1)
  1. ENALAPRIL MALEATE [Suspect]
     Dosage: 20 MG BID PO
     Route: 048
     Dates: start: 20030418, end: 20080718

REACTIONS (5)
  - DIABETES MELLITUS [None]
  - HEART RATE DECREASED [None]
  - HYPERKALAEMIA [None]
  - OBESITY [None]
  - RENAL FAILURE CHRONIC [None]
